FAERS Safety Report 5471631-5 (Version None)
Quarter: 2007Q3

REPORT INFORMATION
  Report Type: 
  Country: None (occurrence: None)
  Receive Date: 20070928
  Receipt Date: 20070319
  Transmission Date: 20080115
  Serious: Yes (Other)
  Sender: FDA-Public Use
  Company Number: US-BRISTOL-MYERS SQUIBB COMPANY-13682265

PATIENT
  Age: 72 Year
  Sex: Female

DRUGS (8)
  1. DEFINITY [Suspect]
     Indication: STRESS ECHOCARDIOGRAM
     Dosage: DILUTED DEFINITY
     Route: 042
     Dates: start: 20070215, end: 20070215
  2. LASIX [Concomitant]
  3. WARFARIN [Concomitant]
  4. OSTEO BI-FLEX [Concomitant]
  5. VITAMIN A [Concomitant]
  6. VITAMIN E [Concomitant]
  7. ASCORBIC ACID [Concomitant]
  8. ZINC [Concomitant]

REACTIONS (4)
  - DYSPNOEA [None]
  - EYE ROLLING [None]
  - FLUSHING [None]
  - LOSS OF CONSCIOUSNESS [None]
